FAERS Safety Report 9466226 (Version 4)
Quarter: 2013Q4

REPORT INFORMATION
  Report Type: Spontaneous
  Country: US (occurrence: US)
  Receive Date: 20130820
  Receipt Date: 20131126
  Transmission Date: 20140711
  Serious: Yes (Other)
  Sender: FDA-Public Use
  Company Number: US-PFIZER INC-2013240454

PATIENT
  Sex: 0

DRUGS (2)
  1. NEURONTIN [Suspect]
     Dosage: UNK
  2. NORVASC [Suspect]
     Dosage: UNK

REACTIONS (2)
  - Diabetes mellitus [Unknown]
  - Hypertension [Unknown]
